FAERS Safety Report 6070006-8 (Version None)
Quarter: 2009Q1

REPORT INFORMATION
  Report Type: 
  Country: None (occurrence: None)
  Receive Date: 20090209
  Receipt Date: 20090127
  Transmission Date: 20090719
  Serious: Yes (Hospitalization)
  Sender: FDA-Public Use
  Company Number: PHHY2009CL02848

PATIENT
  Age: 79 Year
  Sex: Female

DRUGS (2)
  1. TAREG [Suspect]
     Indication: HYPERTENSION
     Dosage: 80 MG, QD
     Route: 048
     Dates: start: 20070101
  2. ASPIRIN [Concomitant]
     Dosage: UNK

REACTIONS (1)
  - CORONARY ARTERY OCCLUSION [None]
